FAERS Safety Report 4604108-7 (Version None)
Quarter: 2005Q1

REPORT INFORMATION
  Report Type: 
  Country: None (occurrence: None)
  Receive Date: 20050309
  Receipt Date: 20050309
  Transmission Date: 20050727
  Serious: Yes (Disabling)
  Sender: FDA-Public Use
  Company Number: None

PATIENT
  Age: 59 Year
  Sex: Male
  Weight: 68.0396 kg

DRUGS (1)
  1. PLAQUENIL [Suspect]
     Indication: RHEUMATOID ARTHRITIS
     Dosage: ORAL
     Route: 048
     Dates: start: 19991115, end: 20000113

REACTIONS (11)
  - ABASIA [None]
  - ANAEMIA [None]
  - AREFLEXIA [None]
  - ASTHENIA [None]
  - CHEST PAIN [None]
  - DYSSTASIA [None]
  - GAIT DISTURBANCE [None]
  - HYPOAESTHESIA [None]
  - NEUROPATHIC PAIN [None]
  - PARAESTHESIA [None]
  - SENSORY LOSS [None]
